FAERS Safety Report 20705932 (Version 2)
Quarter: 2022Q2

REPORT INFORMATION
  Report Type: Report from Study
  Country: US (occurrence: US)
  Receive Date: 20220413
  Receipt Date: 20220503
  Transmission Date: 20220721
  Serious: Yes (Death, Hospitalization)
  Sender: FDA-Public Use
  Company Number: US-NOVARTISPH-NVSC2022US081767

PATIENT
  Age: 77 Year
  Sex: Male

DRUGS (5)
  1. TRAMETINIB [Suspect]
     Active Substance: TRAMETINIB
     Indication: Malignant melanoma
     Dosage: 1.5 MG, UNK
     Route: 048
     Dates: start: 20220310
  2. ZYKADIA [Suspect]
     Active Substance: CERITINIB
     Indication: Malignant melanoma
     Dosage: 300 MG, UNK
     Route: 048
     Dates: start: 20220310
  3. LASIX [Concomitant]
     Active Substance: FUROSEMIDE
     Indication: Product used for unknown indication
     Dosage: UNK
     Route: 065
  4. ISOSORBIDE [Concomitant]
     Active Substance: ISOSORBIDE
     Indication: Product used for unknown indication
     Dosage: UNK
     Route: 065
  5. XARELTO [Concomitant]
     Active Substance: RIVAROXABAN
     Indication: Prophylaxis
     Dosage: UNK
     Route: 065

REACTIONS (4)
  - Cardiac failure [Fatal]
  - Syncope [Unknown]
  - Hypotension [Unknown]
  - Hallucination [Unknown]

NARRATIVE: CASE EVENT DATE: 20220405
